FAERS Safety Report 8238080-8 (Version None)
Quarter: 2012Q1

REPORT INFORMATION
  Report Type: 
  Country: None (occurrence: None)
  Receive Date: 20120327
  Receipt Date: 20120322
  Transmission Date: 20120608
  Serious: Yes (Life-Threatening, Hospitalization)
  Sender: FDA-Public Use
  Company Number: JP-GLAXOSMITHKLINE-B0779167A

PATIENT
  Sex: Male

DRUGS (3)
  1. MYSTAN [Concomitant]
     Indication: JUVENILE MYOCLONIC EPILEPSY
     Dosage: 20MG PER DAY
     Route: 048
     Dates: start: 20090201, end: 20120201
  2. LAMICTAL [Suspect]
     Indication: JUVENILE MYOCLONIC EPILEPSY
     Dosage: 25MG ALTERNATE DAYS
     Route: 048
     Dates: start: 20120121, end: 20120129
  3. DEPAKENE [Concomitant]
     Indication: JUVENILE MYOCLONIC EPILEPSY
     Route: 048
     Dates: start: 20090201, end: 20120201

REACTIONS (31)
  - MUSCULAR WEAKNESS [None]
  - BLOOD FIBRINOGEN DECREASED [None]
  - DISSEMINATED INTRAVASCULAR COAGULATION [None]
  - DECUBITUS ULCER [None]
  - HAEMORRHAGE [None]
  - ASPARTATE AMINOTRANSFERASE INCREASED [None]
  - BLOOD CREATININE INCREASED [None]
  - WHITE BLOOD CELL COUNT INCREASED [None]
  - PROTHROMBIN LEVEL DECREASED [None]
  - ACTIVATED PARTIAL THROMBOPLASTIN TIME PROLONGED [None]
  - RENAL FAILURE [None]
  - PNEUMONIA [None]
  - BLOOD POTASSIUM DECREASED [None]
  - C-REACTIVE PROTEIN INCREASED [None]
  - PLATELET COUNT DECREASED [None]
  - ERYTHEMA [None]
  - RESPIRATORY FAILURE [None]
  - STEVENS-JOHNSON SYNDROME [None]
  - ALANINE AMINOTRANSFERASE INCREASED [None]
  - BLOOD LACTATE DEHYDROGENASE INCREASED [None]
  - PYREXIA [None]
  - CONJUNCTIVAL HYPERAEMIA [None]
  - HAEMORRHAGE SUBCUTANEOUS [None]
  - DIARRHOEA [None]
  - BLOOD CREATINE PHOSPHOKINASE INCREASED [None]
  - ABDOMINAL PAIN [None]
  - DRUG HYPERSENSITIVITY [None]
  - FIBRIN D DIMER INCREASED [None]
  - RASH [None]
  - ALTERED STATE OF CONSCIOUSNESS [None]
  - FIBRIN DEGRADATION PRODUCTS INCREASED [None]
